FAERS Safety Report 16375502 (Version 2)
Quarter: 2019Q2

REPORT INFORMATION
  Report Type: Spontaneous
  Country: US (occurrence: US)
  Receive Date: 20190531
  Receipt Date: 20190531
  Transmission Date: 20190711
  Serious: Yes (Hospitalization, Other)
  Sender: FDA-Public Use
  Company Number: US-ABBVIE-19K-163-2799802-00

PATIENT
  Age: 37 Year
  Sex: Female
  Weight: 74.46 kg

DRUGS (2)
  1. CITRACAL [Concomitant]
     Active Substance: CALCIUM CITRATE
     Indication: PRODUCT USED FOR UNKNOWN INDICATION
  2. HUMIRA [Suspect]
     Active Substance: ADALIMUMAB
     Indication: RHEUMATOID ARTHRITIS
     Route: 058
     Dates: start: 201702, end: 2019

REACTIONS (10)
  - Fungal infection [Recovered/Resolved]
  - Cholecystectomy [Recovered/Resolved]
  - Complication associated with device [Recovered/Resolved]
  - Wisdom teeth removal [Recovered/Resolved]
  - Sinusitis [Recovered/Resolved]
  - Hysterectomy [Not Recovered/Not Resolved]
  - Urinary tract infection [Recovered/Resolved]
  - Therapeutic product effect decreased [Not Recovered/Not Resolved]
  - Bronchitis [Recovered/Resolved]
  - Bacterial vulvovaginitis [Recovered/Resolved]

NARRATIVE: CASE EVENT DATE: 201709
